FAERS Safety Report 8236668-1 (Version None)
Quarter: 2012Q1

REPORT INFORMATION
  Report Type: 
  Country: None (occurrence: None)
  Receive Date: 20120327
  Receipt Date: 20120320
  Transmission Date: 20120608
  Serious: Yes (Life-Threatening, Hospitalization)
  Sender: FDA-Public Use
  Company Number: US-CELGENEUS-163-21660-12030687

PATIENT
  Sex: Male
  Weight: 79.4 kg

DRUGS (38)
  1. OXYCODONE/ACETAMINOPHEN [Concomitant]
     Dosage: 5-325MG
     Route: 048
     Dates: start: 20120217
  2. CIPROFLOXACIN [Concomitant]
     Dosage: 500 MILLIGRAM
     Route: 048
     Dates: start: 20120210, end: 20120306
  3. SIMVASTATIN [Concomitant]
     Dosage: 40 MILLIGRAM
     Route: 048
     Dates: start: 20120306
  4. ENOXAPARIN [Concomitant]
     Dosage: 40 MILLIGRAM
     Route: 065
     Dates: start: 20120306
  5. BENZOCAINE - MENTHOL [Concomitant]
     Dosage: 15
     Route: 065
     Dates: start: 20120305
  6. NYSTATIN [Concomitant]
     Dosage: 500000 IU (INTERNATIONAL UNIT)
     Route: 048
     Dates: start: 20120305
  7. MIRALAX [Concomitant]
     Dosage: 17 GRAM
     Route: 065
     Dates: start: 20120305
  8. NICOTINE [Concomitant]
     Indication: TOBACCO ABUSE
     Dosage: 21 MILLIGRAM
     Route: 065
     Dates: start: 20120304
  9. ABRAXANE [Suspect]
     Dosage: 489 MILLIGRAM
     Route: 065
     Dates: start: 20111216
  10. RBC TRANSFUSION [Concomitant]
     Route: 065
     Dates: start: 20120304
  11. NEULASTA [Concomitant]
     Route: 065
     Dates: start: 20120220
  12. CIPROFLOXACIN [Concomitant]
     Route: 041
     Dates: start: 20120303, end: 20120306
  13. NEXIUM [Concomitant]
     Dosage: 20 MILLIGRAM
     Route: 065
     Dates: start: 20120304
  14. GUAFENESIN-CODEINE [Concomitant]
     Dosage: 5 MILLILITER
     Route: 065
     Dates: start: 20120305
  15. ALBUTEROL [Concomitant]
     Indication: WHEEZING
     Dosage: 108 MICROGRAM
     Route: 055
     Dates: start: 20111129
  16. PLATELETS [Concomitant]
     Dates: start: 20120301
  17. ALBUTEROL SULFATE AND IPRATROPIUM BROMIDE [Concomitant]
     Dosage: 18-103MCG - 2 PUFFS
     Route: 055
     Dates: start: 20111216
  18. BUDESONIDE-FORMATEROL [Concomitant]
     Dosage: 2 PUFFS
     Route: 065
     Dates: start: 20120210
  19. LORAZEPAM [Concomitant]
     Dosage: 5-1 MG
     Route: 065
     Dates: start: 20120305
  20. SODIUM CHLORIDE [Concomitant]
     Dosage: .9 PERCENT
     Route: 041
     Dates: start: 20120304
  21. AREPITANT [Concomitant]
     Route: 048
     Dates: start: 20111216
  22. CARBOPLATIN [Suspect]
     Dosage: 489 MILLIGRAM
     Route: 041
     Dates: start: 20111216
  23. AMOXICILLIN AND CLAVULANATE POTASSIUM [Concomitant]
     Dosage: 875-125MG
     Route: 048
     Dates: start: 20120210
  24. SIMVASTATIN [Concomitant]
     Indication: HYPERLIPIDAEMIA
     Dosage: 20 MILLIGRAM
     Route: 048
     Dates: start: 20120210
  25. ONDANSETRON [Concomitant]
     Dosage: 4 MILLIGRAM
     Route: 065
     Dates: start: 20120305
  26. SENNA [Concomitant]
     Dosage: 8.6 MILLIGRAM
     Route: 065
     Dates: start: 20120305
  27. ZOLEDRONOC ACID [Concomitant]
     Route: 041
     Dates: start: 20120210
  28. OMEPRAZOLE [Concomitant]
     Dosage: 20 MILLIGRAM
     Route: 048
     Dates: start: 20111223
  29. ASPIRIN [Concomitant]
     Indication: CORONARY ARTERY DISEASE
     Dosage: 81 MILLIGRAM
     Route: 065
     Dates: start: 20120306
  30. ZOLPIDEM [Concomitant]
     Dosage: 5 MILLIGRAM
     Route: 065
     Dates: start: 20120306
  31. LORAZEPAM [Concomitant]
     Dosage: 0.5-1 MG
     Route: 048
     Dates: start: 20120305
  32. SODIUM CHLORIDE [Concomitant]
     Dosage: .9 PERCENT
     Route: 041
     Dates: start: 20120303
  33. CALCIUM - VITAMIN D [Concomitant]
     Dosage: 1 TABLET
     Route: 065
     Dates: start: 20111216
  34. ABRAXANE [Suspect]
     Dosage: 489 MILLIGRAM
     Route: 065
     Dates: start: 20120217, end: 20120320
  35. CARBOPLATIN [Suspect]
     Dosage: 84 MILLIGRAM
     Route: 041
     Dates: start: 20120217
  36. ALUM/MAG HYDROX-SIMETHICONE [Concomitant]
     Dosage: 30 MILLILITER
     Route: 065
     Dates: start: 20120305
  37. DOCUSATE [Concomitant]
     Dosage: 100 MILLIGRAM
     Route: 065
     Dates: start: 20120305
  38. DEXAMETHASONE [Concomitant]
     Dosage: 4 MILLIGRAM
     Route: 048
     Dates: start: 20120303

REACTIONS (1)
  - PNEUMONIA [None]
